FAERS Safety Report 18409525 (Version 1)
Quarter: 2020Q4

REPORT INFORMATION
  Report Type: Spontaneous
  Country: US (occurrence: US)
  Receive Date: 20201021
  Receipt Date: 20201021
  Transmission Date: 20210114
  Serious: Yes (Other)
  Sender: FDA-Public Use
  Company Number: US-INDOCO-000112

PATIENT
  Age: 33 Year
  Sex: Female

DRUGS (10)
  1. ESMOLOL [Concomitant]
     Active Substance: ESMOLOL HYDROCHLORIDE
  2. MIDAZOLAM. [Concomitant]
     Active Substance: MIDAZOLAM
     Indication: ANXIOLYTIC THERAPY
     Route: 042
  3. SUCCINYLCHOLINE CHLORIDE. [Suspect]
     Active Substance: SUCCINYLCHOLINE CHLORIDE
     Indication: GENERAL ANAESTHESIA
  4. PROPOFOL. [Concomitant]
     Active Substance: PROPOFOL
     Indication: GENERAL ANAESTHESIA
     Dosage: MAINTAINED WITH SEPARATE CONTINUOUS INFUSIONS OF 300 UG/KG/MIN
  5. METOPROLOL. [Concomitant]
     Active Substance: METOPROLOL
  6. FENTANYL. [Concomitant]
     Active Substance: FENTANYL
     Indication: GENERAL ANAESTHESIA
  7. ROCURONIUM/ROCURONIUM BROMIDE [Concomitant]
     Active Substance: ROCURONIUM BROMIDE
     Indication: GENERAL ANAESTHESIA
  8. SODIUM CHLORIDE. [Concomitant]
     Active Substance: SODIUM CHLORIDE
     Dosage: IV DRIP OF 0.9%
     Route: 041
  9. REMIFENTANIL/REMIFENTANIL HYDROCHLORIDE [Concomitant]
     Active Substance: REMIFENTANIL HYDROCHLORIDE
     Indication: GENERAL ANAESTHESIA
     Dosage: 0.05-0.1 UG/ KG/MIN
  10. DESFLURANE. [Concomitant]
     Active Substance: DESFLURANE

REACTIONS (1)
  - Unresponsive to stimuli [Recovered/Resolved]
